FAERS Safety Report 5070451-3 (Version None)
Quarter: 2006Q3

REPORT INFORMATION
  Report Type: 
  Country: None (occurrence: None)
  Receive Date: 20060804
  Receipt Date: 20060724
  Transmission Date: 20061208
  Serious: Yes (Other)
  Sender: FDA-Public Use
  Company Number: ZA-ABBOTT-06P-143-0338884-00

PATIENT
  Age: 60 Year
  Sex: Male

DRUGS (6)
  1. EPILIM [Suspect]
     Indication: EPILEPSY
     Route: 048
     Dates: end: 20060501
  2. EPILIM [Suspect]
     Route: 048
     Dates: start: 20060501
  3. BISOPROLOL FUMARATE [Concomitant]
     Indication: CARDIAC DISORDER
     Route: 048
  4. ACETYLSALICYLIC ACID SRT [Concomitant]
     Indication: CARDIAC DISORDER
     Route: 048
  5. SIMVASTATIN [Concomitant]
     Indication: CARDIAC DISORDER
     Route: 048
  6. UNSPECIFIED CLINICAL TRIAL MEDICATIONS [Concomitant]
     Indication: CARDIAC DISORDER

REACTIONS (3)
  - AMNESIA [None]
  - CONSCIOUSNESS FLUCTUATING [None]
  - DRUG INEFFECTIVE [None]
